FAERS Safety Report 15072504 (Version 1)
Quarter: 2018Q2

REPORT INFORMATION
  Report Type: Report from Study
  Country: US (occurrence: US)
  Receive Date: 20180626
  Receipt Date: 20180626
  Transmission Date: 20180711
  Serious: Yes (Hospitalization)
  Sender: FDA-Public Use
  Company Number: PHEH2018US024159

PATIENT
  Sex: Female

DRUGS (1)
  1. AFINITOR [Suspect]
     Active Substance: EVEROLIMUS
     Indication: ASTROCYTOMA, LOW GRADE
     Dosage: 10 MG, QD
     Route: 065
     Dates: start: 20110808

REACTIONS (3)
  - Scratch [Not Recovered/Not Resolved]
  - Laceration [Not Recovered/Not Resolved]
  - Hypertension [Not Recovered/Not Resolved]
